FAERS Safety Report 5968798-9 (Version None)
Quarter: 2008Q4

REPORT INFORMATION
  Report Type: 
  Country: None (occurrence: None)
  Receive Date: 20081126
  Receipt Date: 20081112
  Transmission Date: 20090506
  Serious: Yes (Life-Threatening, Hospitalization)
  Sender: FDA-Public Use
  Company Number: FR-GENENTECH-271948

PATIENT
  Sex: Male

DRUGS (8)
  1. RITUXIMAB [Suspect]
     Indication: NON-HODGKIN'S LYMPHOMA
     Dosage: 750 MG, QD
     Route: 042
     Dates: start: 20080901, end: 20081016
  2. SOLU-MEDROL [Suspect]
     Indication: NON-HODGKIN'S LYMPHOMA
     Dosage: 50 MG, QD
     Route: 042
     Dates: start: 20080902, end: 20081022
  3. VINCRISTINE [Suspect]
     Indication: NON-HODGKIN'S LYMPHOMA
     Dosage: 2 MG, QD
     Route: 042
     Dates: start: 20080902, end: 20080925
  4. METHOTREXATE [Suspect]
     Indication: NON-HODGKIN'S LYMPHOMA
     Dosage: 3000 MG, QD
     Route: 042
     Dates: start: 20080904, end: 20081017
  5. DEPOCYTE [Suspect]
     Indication: NON-HODGKIN'S LYMPHOMA
     Dosage: 50 MG, QD
     Route: 042
     Dates: start: 20080905, end: 20081018
  6. CYCLOPHOSPHAMIDE [Suspect]
     Indication: NON-HODGKIN'S LYMPHOMA
     Dosage: 1000 MG, QD
     Route: 042
     Dates: start: 20080905, end: 20081028
  7. MEDROL [Suspect]
     Indication: NON-HODGKIN'S LYMPHOMA
     Dosage: 80 MG, QD
     Route: 042
     Dates: start: 20080908, end: 20080930
  8. ADRIBLASTINE [Suspect]
     Indication: NON-HODGKIN'S LYMPHOMA
     Dosage: 60 MG, QD
     Route: 042
     Dates: start: 20080905, end: 20080926

REACTIONS (1)
  - FEBRILE BONE MARROW APLASIA [None]
